FAERS Safety Report 6342098-X (Version None)
Quarter: 2009Q3

REPORT INFORMATION
  Report Type: 
  Country: None (occurrence: None)
  Receive Date: 20090904
  Receipt Date: 20090904
  Transmission Date: 20100115
  Serious: Yes (Hospitalization)
  Sender: FDA-Public Use
  Company Number: None

PATIENT
  Sex: Male
  Weight: 36.5 kg

DRUGS (6)
  1. CYCLOPHOSPHAMIDE [Suspect]
     Dosage: 48 MG
     Dates: end: 20090709
  2. ONCASPAR [Suspect]
     Dosage: 6080 MG
     Dates: end: 20090810
  3. VINCRISTINE SULFATE [Suspect]
     Dosage: 7.2 MG
     Dates: end: 20090817
  4. CYCLOPHOSPHAMIDE [Suspect]
     Dosage: 2430 MG
     Dates: end: 20090728
  5. CYTARABINE [Suspect]
     Dosage: 1440 MG
     Dates: end: 20090806
  6. MERCAPTOPURINE [Suspect]
     Dosage: 2100 MG
     Dates: end: 20090811

REACTIONS (3)
  - CONVULSION [None]
  - ENCEPHALOPATHY [None]
  - NEUROLOGICAL DECOMPENSATION [None]
